FAERS Safety Report 5983163-6 (Version None)
Quarter: 2008Q4

REPORT INFORMATION
  Report Type: 
  Country: None (occurrence: None)
  Receive Date: 20081208
  Receipt Date: 20080121
  Transmission Date: 20090506
  Serious: No
  Sender: FDA-Public Use
  Company Number: US-BAYER-200810338BCC

PATIENT
  Age: 56 Year
  Sex: Female
  Weight: 50 kg

DRUGS (3)
  1. ALEVE-D SINUS + COLD [Suspect]
     Indication: NASOPHARYNGITIS
     Route: 048
     Dates: start: 20080120
  2. ALEVE-D SINUS + COLD [Suspect]
     Route: 048
     Dates: start: 20080121
  3. ARMOUR [Concomitant]

REACTIONS (1)
  - HEADACHE [None]
